FAERS Safety Report 24787742 (Version 1)
Quarter: 2024Q4

REPORT INFORMATION
  Report Type: Spontaneous
  Country: PT (occurrence: PT)
  Receive Date: 20241230
  Receipt Date: 20241230
  Transmission Date: 20250115
  Serious: Yes (Hospitalization)
  Sender: STRIDES
  Company Number: PT-STRIDES ARCOLAB LIMITED-2024SP017080

PATIENT
  Age: 44 Year
  Sex: Female

DRUGS (1)
  1. DISULFIRAM [Suspect]
     Active Substance: DISULFIRAM
     Indication: Alcohol use disorder
     Dosage: 250 MILLIGRAM, QD
     Route: 065

REACTIONS (3)
  - Neurotoxicity [Recovered/Resolved]
  - Acute motor-sensory axonal neuropathy [Recovered/Resolved]
  - Respiratory failure [Recovered/Resolved]
